FAERS Safety Report 5335435-6 (Version None)
Quarter: 2007Q2

REPORT INFORMATION
  Report Type: 
  Country: None (occurrence: None)
  Receive Date: 20070525
  Receipt Date: 20070515
  Transmission Date: 20071010
  Serious: Yes (Hospitalization, Other)
  Sender: FDA-Public Use
  Company Number: US-PFIZER INC-2007040261

PATIENT
  Sex: Male
  Weight: 90.7 kg

DRUGS (2)
  1. CELEBREX [Suspect]
     Indication: ILL-DEFINED DISORDER
     Dates: start: 20010901, end: 20010901
  2. BEXTRA [Suspect]
     Indication: ILL-DEFINED DISORDER
     Dates: start: 20011001, end: 20011001

REACTIONS (2)
  - MYOCARDIAL INFARCTION [None]
  - STRESS [None]
